FAERS Safety Report 15392060 (Version 1)
Quarter: 2018Q3

REPORT INFORMATION
  Report Type: Spontaneous
  Country: US (occurrence: US)
  Receive Date: 20180917
  Receipt Date: 20180917
  Transmission Date: 20181010
  Serious: No
  Sender: FDA-Public Use
  Company Number: US-PFIZER INC-2018373163

PATIENT
  Age: 20 Year
  Sex: Female

DRUGS (1)
  1. EUCRISA [Suspect]
     Active Substance: CRISABOROLE
     Dosage: UNK, 2X/DAY (APPLY ONE APPLICATION ON THE SKIN TWICE A DAY)
     Route: 061
     Dates: start: 201808

REACTIONS (2)
  - Application site pain [Unknown]
  - Application site erythema [Unknown]
